FAERS Safety Report 9848733 (Version 1)
Quarter: 2013Q4

REPORT INFORMATION
  Report Type: Spontaneous
  Country: US (occurrence: None)
  Receive Date: 20131226
  Receipt Date: 20131226
  Transmission Date: 20140711
  Serious: Yes (Other)
  Sender: FDA-Public Use
  Company Number: PHEH2013US005346

PATIENT
  Age: 79 Year
  Sex: Female

DRUGS (10)
  1. TEKTURNA [Suspect]
     Indication: BLOOD PRESSURE ABNORMAL
  2. DIOVAN [Suspect]
     Indication: BLOOD PRESSURE ABNORMAL
  3. LOSARTAN [Suspect]
     Indication: BLOOD PRESSURE ABNORMAL
  4. CLONIDINE (CLONIDINE) [Concomitant]
  5. HYDROCHLOROTHIAZIDE (HYDROCHLOROTHIAZIDE) [Concomitant]
  6. PRILOSEC (OMEPRAZOLE) [Concomitant]
  7. MAGNESIUM OXIDE (MAGNESIUM OXIDE) [Concomitant]
  8. VITAMIN C (ASCORBIC ACID) [Concomitant]
  9. MULTIVITAMIN/VITAMINS NOS (VITAMINS NOS) [Concomitant]
  10. VITAMIN B (VITAMIN B COMPLEX) [Concomitant]

REACTIONS (7)
  - Hypertension [None]
  - Pyrexia [None]
  - Back pain [None]
  - Hypersensitivity [None]
  - Dry mouth [None]
  - Diarrhoea [None]
  - Drug ineffective [None]
